FAERS Safety Report 14161408 (Version 2)
Quarter: 2017Q4

REPORT INFORMATION
  Report Type: Spontaneous
  Country: ID (occurrence: ID)
  Receive Date: 20171106
  Receipt Date: 20171121
  Transmission Date: 20180321
  Serious: Yes (Hospitalization)
  Sender: FDA-Public Use
  Company Number: ID-ASTELLAS-2017US044781

PATIENT

DRUGS (4)
  1. TARCEVA [Suspect]
     Active Substance: ERLOTINIB HYDROCHLORIDE
     Indication: METASTASES TO BONE
  2. BONDRONAT                          /01304701/ [Suspect]
     Active Substance: IBANDRONIC ACID
     Indication: METASTASES TO BONE
  3. BONDRONAT                          /01304701/ [Suspect]
     Active Substance: IBANDRONIC ACID
     Indication: NON-SMALL CELL LUNG CANCER
     Dosage: UNK UNK, UNKNOWN FREQ.
     Route: 065
  4. TARCEVA [Suspect]
     Active Substance: ERLOTINIB HYDROCHLORIDE
     Indication: NON-SMALL CELL LUNG CANCER
     Route: 065

REACTIONS (4)
  - Papule [Recovered/Resolved]
  - Ear injury [Recovered/Resolved]
  - Haemorrhage [Unknown]
  - Dry skin [Recovered/Resolved]

NARRATIVE: CASE EVENT DATE: 201710
